FAERS Safety Report 11200543 (Version 4)
Quarter: 2019Q1

REPORT INFORMATION
  Report Type: Report from Study
  Country: BR (occurrence: BR)
  Receive Date: 20150618
  Receipt Date: 20190222
  Transmission Date: 20190417
  Serious: Yes (Death, Other)
  Sender: FDA-Public Use
  Company Number: PHHY2015BR069789

PATIENT
  Age: 73 Year
  Sex: Female
  Weight: 60 kg

DRUGS (3)
  1. CALCIUM 600 PLUS VITAMIN D3 [Concomitant]
     Indication: MINERAL SUPPLEMENTATION
     Dosage: 2 DF, QD
     Route: 048
     Dates: start: 2006
  2. ACLASTA [Suspect]
     Active Substance: ZOLEDRONIC ACID
     Indication: OSTEOPOROSIS
     Dosage: 1 DF, Q12MO (FOUR YEARS AGO)
     Route: 042
  3. ACLASTA [Suspect]
     Active Substance: ZOLEDRONIC ACID
     Dosage: 1 DF, Q12MO
     Route: 042
     Dates: start: 2016, end: 2016

REACTIONS (19)
  - Memory impairment [Not Recovered/Not Resolved]
  - Speech disorder [Unknown]
  - Balance disorder [Not Recovered/Not Resolved]
  - Pelvic fracture [Recovered/Resolved]
  - Body height decreased [Unknown]
  - Inappropriate schedule of product administration [Unknown]
  - Nausea [Unknown]
  - Autoimmune disorder [Not Recovered/Not Resolved]
  - Eating disorder [Unknown]
  - Musculoskeletal deformity [Unknown]
  - Gait disturbance [Unknown]
  - Weight decreased [Unknown]
  - Respiratory failure [Fatal]
  - Fatigue [Unknown]
  - Fall [Recovered/Resolved]
  - Dyspnoea [Not Recovered/Not Resolved]
  - Arterial disorder [Not Recovered/Not Resolved]
  - Condition aggravated [Not Recovered/Not Resolved]
  - Fracture pain [Recovered/Resolved]

NARRATIVE: CASE EVENT DATE: 20170727
